FAERS Safety Report 4841921-5 (Version None)
Quarter: 2005Q4

REPORT INFORMATION
  Report Type: 
  Country: None (occurrence: None)
  Receive Date: 20051130
  Receipt Date: 20051004
  Transmission Date: 20060501
  Serious: Yes (Other)
  Sender: FDA-Public Use
  Company Number: US-GLAXOSMITHKLINE-A0576961A

PATIENT
  Age: 19 Year
  Sex: Female

DRUGS (3)
  1. WELLBUTRIN [Suspect]
     Indication: DEPRESSION
     Dosage: 150MG PER DAY
     Route: 048
     Dates: start: 20050923, end: 20051003
  2. WELLBUTRIN [Suspect]
     Dosage: 150MG PER DAY
     Route: 048
     Dates: start: 20050801, end: 20050922
  3. SINGULAIR [Concomitant]

REACTIONS (4)
  - HEADACHE [None]
  - PRURITUS [None]
  - RASH [None]
  - URTICARIA [None]
